FAERS Safety Report 6686525-7 (Version None)
Quarter: 2010Q2

REPORT INFORMATION
  Report Type: 
  Country: None (occurrence: None)
  Receive Date: 20100419
  Receipt Date: 20100405
  Transmission Date: 20101027
  Serious: Yes (Hospitalization, Other)
  Sender: FDA-Public Use
  Company Number: US-ELI_LILLY_AND_COMPANY-US200912005485

PATIENT
  Sex: Female

DRUGS (10)
  1. FORTEO [Suspect]
     Indication: OSTEOPOROSIS
     Dosage: ONE INJECTION, DAILY
     Dates: start: 20090401
  2. FORTEO [Suspect]
     Dosage: 20 UG, DAILY (1/D)
  3. LEXAPRO [Concomitant]
  4. XANAX [Concomitant]
  5. PHENERGAN [Concomitant]
  6. OXYCODONE [Concomitant]
  7. TUMS /00108001/ [Concomitant]
  8. CALCIUM [Concomitant]
  9. VITAMIN D [Concomitant]
     Dosage: 50000 IU, WEEKLY (1/W)
  10. VITAMINS NOS [Concomitant]

REACTIONS (11)
  - ABDOMINAL PAIN UPPER [None]
  - BLOOD PRESSURE INCREASED [None]
  - CARDIAC DISORDER [None]
  - CARDIAC MURMUR [None]
  - CONSTIPATION [None]
  - FEELING ABNORMAL [None]
  - MASS [None]
  - MEMORY IMPAIRMENT [None]
  - MUSCLE SPASMS [None]
  - PAIN [None]
  - PAIN IN JAW [None]
